FAERS Safety Report 9433788 (Version 1)
Quarter: 2013Q3

REPORT INFORMATION
  Report Type: Spontaneous
  Country: JP (occurrence: JP)
  Receive Date: 20130731
  Receipt Date: 20130731
  Transmission Date: 20140515
  Serious: Yes (Disabling)
  Sender: FDA-Public Use
  Company Number: PHHY2013JP079945

PATIENT
  Age: 68 Year
  Sex: Female
  Weight: 31 kg

DRUGS (4)
  1. ZOMETA [Suspect]
     Indication: METASTASES TO BONE
     Dosage: 4 MG, PER ADMINISTRATION
     Route: 041
     Dates: start: 20120106, end: 20120720
  2. ZOMETA [Suspect]
     Dosage: UNK UKN, UNK
     Route: 041
     Dates: start: 20130703
  3. RANMARK [Suspect]
     Indication: METASTASES TO BONE
     Dosage: 120 MG, DAILY
     Route: 058
     Dates: start: 20120817, end: 20130621
  4. ARIMIDEX [Concomitant]
     Dosage: 1 MG, UNK
     Route: 048

REACTIONS (1)
  - Osteonecrosis of jaw [Not Recovered/Not Resolved]
